FAERS Safety Report 7425578-5 (Version None)
Quarter: 2011Q2

REPORT INFORMATION
  Report Type: 
  Country: None (occurrence: None)
  Receive Date: 20110420
  Receipt Date: 20100719
  Transmission Date: 20111010
  Serious: No
  Sender: FDA-Public Use
  Company Number: US-ASTRAZENECA-2010SE27935

PATIENT
  Age: 64 Year
  Sex: Female
  Weight: 81.6 kg

DRUGS (3)
  1. COUMADIN [Concomitant]
  2. KAPIDEX [Suspect]
     Indication: GASTROOESOPHAGEAL REFLUX DISEASE
     Route: 048
  3. CASODEX [Suspect]
     Route: 048

REACTIONS (3)
  - DRUG NAME CONFUSION [None]
  - GINGIVAL BLEEDING [None]
  - DRUG DISPENSING ERROR [None]
